FAERS Safety Report 24355480 (Version 1)
Quarter: 2024Q3

REPORT INFORMATION
  Report Type: Spontaneous
  Country: US (occurrence: US)
  Receive Date: 20240924
  Receipt Date: 20240924
  Transmission Date: 20241016
  Serious: No
  Sender: REVANCE THERAPEUTICS
  Company Number: US-REVANCE THERAPEUTICS INC.-US-REV-2024-000487

PATIENT
  Sex: Female

DRUGS (1)
  1. DAXIBOTULINUMTOXIN A-LANM [Suspect]
     Active Substance: DAXIBOTULINUMTOXIN A-LANM
     Indication: Skin wrinkling
     Dosage: UNK UNITS
     Route: 065
     Dates: start: 20240818

REACTIONS (1)
  - Injection site pain [Unknown]

NARRATIVE: CASE EVENT DATE: 20240818
